FAERS Safety Report 9295625 (Version 2)
Quarter: 2013Q2

REPORT INFORMATION
  Report Type: Report from Study
  Country: DE (occurrence: DE)
  Receive Date: 20130517
  Receipt Date: 20130523
  Transmission Date: 20140414
  Serious: Yes (Life-Threatening, Hospitalization)
  Sender: FDA-Public Use
  Company Number: DE-ROCHE-1144989

PATIENT
  Age: 58 Year
  Sex: Female
  Weight: 102 kg

DRUGS (11)
  1. TRASTUZUMAB [Suspect]
     Indication: BREAST CANCER
     Dosage: DATE OF LAST DOSE PRIOR TO SAE: 02/OCT/2012
     Route: 042
     Dates: start: 20120808, end: 20121019
  2. TRASTUZUMAB [Suspect]
     Route: 065
     Dates: start: 20121029
  3. CARBOPLATIN [Suspect]
     Indication: BREAST CANCER
     Dosage: DOSE: 1.5 MG/ML, DATE OF LAST DOSE PRIOR TO SAE: 02/OCT/2012
     Route: 042
     Dates: start: 20120809, end: 20121019
  4. DOXORUBICIN/DOXORUBICIN HYDROCHLORIDE [Suspect]
     Indication: BREAST CANCER
     Dosage: DATE OF LAST DOSE PRIOR TO SAE: 02/OCT/2012
     Route: 042
     Dates: start: 20120809, end: 20121019
  5. LAPATINIB [Suspect]
     Indication: BREAST CANCER
     Dosage: LAST DOSE PRIOR TO SAE:07/OCT/2012
     Route: 048
     Dates: start: 20120809, end: 20121007
  6. PACLITAXEL [Suspect]
     Indication: BREAST CANCER
     Dosage: DOSE: 80 KG/M2; LAST DOSE PRIOR TO SAE:02/OCT/2012
     Route: 042
     Dates: start: 20120809, end: 20121019
  7. NEUPOGEN [Concomitant]
     Route: 065
     Dates: start: 20120911, end: 20121007
  8. KEVATRIL [Concomitant]
     Route: 065
     Dates: start: 201208, end: 20121002
  9. FENISTIL [Concomitant]
     Route: 065
     Dates: start: 201208, end: 201210
  10. RANITIC [Concomitant]
     Route: 065
     Dates: start: 201208, end: 20121002
  11. DEXAMETHASON [Concomitant]
     Route: 065
     Dates: start: 201208, end: 20121002

REACTIONS (2)
  - Diarrhoea [Recovered/Resolved]
  - Sepsis [Recovered/Resolved]
